FAERS Safety Report 5823756-X (Version None)
Quarter: 2008Q3

REPORT INFORMATION
  Report Type: 
  Country: None (occurrence: None)
  Receive Date: 20080725
  Receipt Date: 20080714
  Transmission Date: 20090109
  Serious: Yes (Hospitalization)
  Sender: FDA-Public Use
  Company Number: JP-PFIZER INC-2008059006

PATIENT
  Age: 61 Year
  Sex: Male

DRUGS (2)
  1. EPLERENONE [Suspect]
     Route: 048
  2. OLMETEC [Interacting]
     Route: 048

REACTIONS (2)
  - DRUG INTERACTION [None]
  - HYPONATRAEMIA [None]
